FAERS Safety Report 4918777-5 (Version None)
Quarter: 2006Q1

REPORT INFORMATION
  Report Type: 
  Country: None (occurrence: None)
  Receive Date: 20060222
  Receipt Date: 20060215
  Transmission Date: 20060701
  Serious: Yes (Hospitalization)
  Sender: FDA-Public Use
  Company Number: US-KINGPHARMUSA00001-K200600224

PATIENT
  Age: 57 Year
  Sex: Female
  Weight: 102 kg

DRUGS (3)
  1. CYTOMEL [Suspect]
     Indication: HYPOTHYROIDISM
     Dosage: 50 MCG, SINGLE
     Route: 048
     Dates: start: 19910101, end: 19910101
  2. BEROCCA [Concomitant]
     Indication: NERVOUS SYSTEM DISORDER
     Dosage: 1 TABLET, QD
     Route: 048
     Dates: end: 20060211
  3. MULTIVITAMIN ^LAPPE^ [Concomitant]
     Indication: VITAMIN SUPPLEMENTATION
     Dosage: 1 TABLET, QD
     Route: 048
     Dates: end: 20050101

REACTIONS (1)
  - ELECTROCARDIOGRAM T WAVE INVERSION [None]
